FAERS Safety Report 6475922-0 (Version None)
Quarter: 2009Q4

REPORT INFORMATION
  Report Type: 
  Country: None (occurrence: None)
  Receive Date: 20091204
  Receipt Date: 20091123
  Transmission Date: 20100525
  Serious: Yes (Other)
  Sender: FDA-Public Use
  Company Number: PHHY2009DE51901

PATIENT
  Sex: Female

DRUGS (7)
  1. DIOVAN [Suspect]
     Indication: HYPERTENSION
     Dosage: 80 MG, QD
     Dates: end: 20090801
  2. DIOVAN [Suspect]
     Dosage: 160 MG, QD
     Dates: start: 20090801, end: 20090801
  3. RASILEZ [Suspect]
     Indication: HYPERTENSION
     Dosage: 300 MG, QD
     Dates: start: 20070101, end: 20070101
  4. RASILEZ [Suspect]
     Dosage: 150 MG, QD
     Dates: start: 20070101
  5. AQUAPHOR [Concomitant]
     Dosage: UNK
     Dates: end: 20090801
  6. MOXONIDINE [Concomitant]
     Dosage: UNK
     Dates: start: 20091111
  7. CARVEDILOL [Concomitant]
     Dosage: UNK
     Dates: start: 20070101

REACTIONS (13)
  - ANGIOEDEMA [None]
  - BACK PAIN [None]
  - BLOOD PRESSURE FLUCTUATION [None]
  - BLOOD PRESSURE INADEQUATELY CONTROLLED [None]
  - CIRCULATORY COLLAPSE [None]
  - COUGH [None]
  - DYSPHONIA [None]
  - HERPES VIRUS INFECTION [None]
  - NASAL CONGESTION [None]
  - PAIN IN JAW [None]
  - PHARYNGEAL ERYTHEMA [None]
  - SKIN DISORDER [None]
  - TINNITUS [None]
